FAERS Safety Report 16347013 (Version 2)
Quarter: 2019Q2

REPORT INFORMATION
  Report Type: Spontaneous
  Country: DE (occurrence: DE)
  Receive Date: 20190523
  Receipt Date: 20190530
  Transmission Date: 20190711
  Serious: Yes (Life-Threatening, Disabling, Other)
  Sender: FDA-Public Use
  Company Number: DE-AUROBINDO-AUR-APL-2019-028641

PATIENT

DRUGS (4)
  1. BUCAIN 5MG/ML SOLUTION FOR INJECTION [Suspect]
     Active Substance: BUPIVACAINE HYDROCHLORIDE
     Indication: SPINAL ANAESTHESIA
     Dosage: 12.5 MILLIGRAM
     Route: 037
     Dates: start: 20190116, end: 20190116
  2. OCTENIDERM [Suspect]
     Active Substance: ISOPROPYL ALCOHOL\OCTENIDINE HYDROCHLORIDE\PROPYL ALCOHOL
     Indication: INFECTION PROPHYLAXIS
     Dosage: 4-FOLD PREPUNCTIONAL WIPE DISINFECTION AND SUBSEQUENT DRYING
     Route: 003
     Dates: start: 20190116, end: 20190116
  3. SUFENTANIL HAMELN [Concomitant]
     Indication: SPINAL ANAESTHESIA
     Dosage: 5 MICROGRAM
     Route: 037
     Dates: start: 20190116, end: 20190116
  4. LIDOCAINE. [Concomitant]
     Active Substance: LIDOCAINE
     Indication: LOCAL ANAESTHESIA
     Dosage: 2 MILLILITER
     Route: 065
     Dates: start: 20190116

REACTIONS (15)
  - Abdominal discomfort [Unknown]
  - Mobility decreased [Unknown]
  - Arachnoiditis [Recovered/Resolved with Sequelae]
  - Paraplegia [Unknown]
  - Nausea [Unknown]
  - Sensory loss [Unknown]
  - Pleocytosis [Unknown]
  - Headache [Unknown]
  - Disturbance in attention [Recovering/Resolving]
  - Hypoaesthesia [Unknown]
  - Paraparesis [Unknown]
  - Radiculopathy [Unknown]
  - Cerebrospinal fluid retention [Unknown]
  - Disorientation [Unknown]
  - Bladder discomfort [Unknown]

NARRATIVE: CASE EVENT DATE: 20190117
